FAERS Safety Report 19944361 (Version 4)
Quarter: 2022Q4

REPORT INFORMATION
  Report Type: Spontaneous
  Country: US (occurrence: US)
  Receive Date: 20211011
  Receipt Date: 20221202
  Transmission Date: 20230113
  Serious: No
  Sender: FDA-Public Use
  Company Number: US-PFIZER INC-202100924122

PATIENT
  Age: 72 Year
  Sex: Female

DRUGS (3)
  1. XELJANZ XR [Suspect]
     Active Substance: TOFACITINIB CITRATE
     Indication: Colitis ulcerative
     Dosage: 22 MG, 1X/DAY (11 MG 2 TABLETS A DAY FOR A MONTH)
     Route: 048
  2. XELJANZ XR [Suspect]
     Active Substance: TOFACITINIB CITRATE
     Dosage: 11 MG, 1X/DAY
     Route: 048
  3. XELJANZ XR [Suspect]
     Active Substance: TOFACITINIB CITRATE
     Dosage: 11 MG, 2X/DAY

REACTIONS (8)
  - Drug ineffective [Unknown]
  - Off label use [Unknown]
  - Sinusitis [Unknown]
  - Back injury [Unknown]
  - Urinary tract infection [Unknown]
  - Colitis [Unknown]
  - Hypertension [Unknown]
  - Influenza like illness [Unknown]
